FAERS Safety Report 25444346 (Version 2)
Quarter: 2025Q3

REPORT INFORMATION
  Report Type: Spontaneous
  Country: US (occurrence: US)
  Receive Date: 20250617
  Receipt Date: 20250711
  Transmission Date: 20251021
  Serious: Yes (Other)
  Sender: UCB
  Company Number: US-UCBSA-2025023338

PATIENT
  Sex: Female

DRUGS (1)
  1. BIMZELX [Suspect]
     Active Substance: BIMEKIZUMAB-BKZX
     Indication: Psoriasis
     Dosage: 320 MILLIGRAM, EV 4 WEEKS
     Route: 058
     Dates: start: 202503, end: 2025

REACTIONS (5)
  - Lupus-like syndrome [Recovering/Resolving]
  - Psoriasis [Unknown]
  - Rash [Unknown]
  - Arthralgia [Recovered/Resolved]
  - Butterfly rash [Unknown]

NARRATIVE: CASE EVENT DATE: 20250101
